FAERS Safety Report 5564579-9 (Version None)
Quarter: 2007Q4

REPORT INFORMATION
  Report Type: 
  Country: None (occurrence: None)
  Receive Date: 20071212
  Receipt Date: 20071204
  Transmission Date: 20080405
  Serious: Yes (Life-Threatening, Hospitalization, Other)
  Sender: FDA-Public Use
  Company Number: 07H-163-0313538-00

PATIENT
  Age: 16 Year
  Sex: Female

DRUGS (18)
  1. FUROSEMIDE [Suspect]
     Indication: DIURETIC THERAPY
  2. ONDANSETRON [Suspect]
     Indication: VOMITING
     Dosage: ORAL
     Route: 048
  3. CLARITHROMYCIN [Suspect]
     Indication: HELICOBACTER INFECTION
     Dosage: ORAL
     Route: 048
  4. CYTARABINE [Concomitant]
  5. MERCAPTOPURINE [Concomitant]
  6. VINCRISTINE [Concomitant]
  7. ASPARAGINASE (ASPARAGINASE) [Concomitant]
  8. CEFEPIME [Concomitant]
  9. VANCOMYCIN [Concomitant]
  10. TOBRAMYCIN [Concomitant]
  11. BICARBONATE (SODIUM BICARBONATE) [Concomitant]
  12. LORAZEPAM [Concomitant]
  13. AMOXICILLIN [Concomitant]
  14. PANTOPRAZOLE SODIUM [Concomitant]
  15. METRONIDAZOLE [Concomitant]
  16. TRIMETHOPRIM/SULFAMETHOXAZOLE (BACTRIM /00086101/) [Concomitant]
  17. DIPHENHYDRAMINE (DIPHENHYDRAMINE) [Concomitant]
  18. HYDROXYZINE [Concomitant]

REACTIONS (9)
  - CARDIAC ARREST [None]
  - DIARRHOEA [None]
  - ELECTROCARDIOGRAM QT PROLONGED [None]
  - HYPOKALAEMIA [None]
  - HYPOMAGNESAEMIA [None]
  - RENAL IMPAIRMENT [None]
  - TORSADE DE POINTES [None]
  - VENTRICULAR EXTRASYSTOLES [None]
  - VENTRICULAR TACHYCARDIA [None]
